FAERS Safety Report 14751908 (Version 1)
Quarter: 2018Q2

REPORT INFORMATION
  Report Type: Spontaneous
  Country: JP (occurrence: JP)
  Receive Date: 20180412
  Receipt Date: 20180412
  Transmission Date: 20180711
  Serious: Yes (Hospitalization)
  Sender: FDA-Public Use
  Company Number: JP-GLAXOSMITHKLINE-JP2018JPN059548

PATIENT
  Age: 68 Year
  Sex: Female

DRUGS (3)
  1. RELVAR ELLIPTA [Suspect]
     Active Substance: FLUTICASONE FUROATE\VILANTEROL TRIFENATATE
     Dosage: 200 ?G, QD
     Route: 055
  2. SPIRIVA RESPIMAT [Concomitant]
     Active Substance: TIOTROPIUM BROMIDE
     Dosage: UNK UNK, QD
  3. SERETIDE [Suspect]
     Active Substance: FLUTICASONE PROPIONATE\SALMETEROL XINAFOATE
     Dosage: UNK
     Route: 055

REACTIONS (5)
  - Pharyngeal erythema [Recovered/Resolved]
  - Pharyngeal oedema [Unknown]
  - Wrong technique in product usage process [Unknown]
  - Dysphonia [Not Recovered/Not Resolved]
  - Arthropathy [Unknown]

NARRATIVE: CASE EVENT DATE: 2015
